FAERS Safety Report 8990016 (Version 1)
Quarter: 2012Q4

REPORT INFORMATION
  Report Type: 
  Country: IT (occurrence: FR)
  Receive Date: 20121228
  Receipt Date: 20121228
  Transmission Date: 20130627
  Serious: Yes (Hospitalization)
  Sender: FDA-Public Use
  Company Number: FR-FRI-1000041256

PATIENT
  Age: 89 Year
  Sex: Female

DRUGS (11)
  1. NEBIVOLOL [Suspect]
     Dosage: 5 mg
     Route: 048
     Dates: start: 20121023, end: 20121025
  2. PLAVIX [Suspect]
     Route: 048
     Dates: start: 20121023, end: 20121025
  3. ONGLYZA [Suspect]
     Dosage: 5 mg
     Route: 048
     Dates: end: 20121025
  4. AMAREL [Suspect]
     Dosage: 4 mg
     Route: 048
     Dates: end: 20121025
  5. AMLOR [Concomitant]
  6. DAFALGAN [Concomitant]
  7. PANTOPRAZOLE [Concomitant]
  8. IKOREL [Concomitant]
  9. DISCOTRINE [Concomitant]
  10. METEOXANE [Concomitant]
  11. PROCORALAN [Concomitant]

REACTIONS (1)
  - Pancreatitis acute [Recovering/Resolving]
